FAERS Safety Report 7287212-7 (Version None)
Quarter: 2011Q1

REPORT INFORMATION
  Report Type: 
  Country: None (occurrence: None)
  Receive Date: 20110211
  Receipt Date: 20110131
  Transmission Date: 20110831
  Serious: Yes (Hospitalization, Other)
  Sender: FDA-Public Use
  Company Number: AU-ROCHE-756501

PATIENT
  Sex: Female

DRUGS (1)
  1. ACTEMRA [Suspect]
     Indication: RHEUMATOID ARTHRITIS
     Dosage: DOSE FORM REPORTED AS INFUSION.
     Route: 042
     Dates: start: 20101001

REACTIONS (2)
  - SPINAL COMPRESSION FRACTURE [None]
  - TRAUMATIC ULCER [None]
